FAERS Safety Report 21050251 (Version 1)
Quarter: 2022Q3

REPORT INFORMATION
  Report Type: Spontaneous
  Country: ES (occurrence: ES)
  Receive Date: 20220706
  Receipt Date: 20220706
  Transmission Date: 20221027
  Serious: Yes (Other)
  Sender: FDA-Public Use
  Company Number: None

PATIENT
  Age: 69 Year
  Sex: Female
  Weight: 55 kg

DRUGS (2)
  1. MYFORTIC [Suspect]
     Active Substance: MYCOPHENOLATE SODIUM
     Indication: Sarcoidosis
     Dosage: 360 MG, Q12H (360 MG CADA 12H)
     Route: 048
     Dates: start: 20210922, end: 20220614
  2. TOCILIZUMAB [Suspect]
     Active Substance: TOCILIZUMAB
     Indication: Uveitis
     Dosage: 1 DOSAGE FORM (1 INJECTION), QW (4 PRE-FILLED SYRINGES OF 0.9 ML)
     Route: 058
     Dates: start: 20211202, end: 20220614

REACTIONS (1)
  - Herpes zoster [Recovering/Resolving]

NARRATIVE: CASE EVENT DATE: 20220420
